FAERS Safety Report 16917119 (Version 2)
Quarter: 2019Q4

REPORT INFORMATION
  Report Type: Spontaneous
  Country: US (occurrence: US)
  Receive Date: 20191015
  Receipt Date: 20191107
  Transmission Date: 20200122
  Serious: Yes (Life-Threatening, Hospitalization, Other)
  Sender: FDA-Public Use
  Company Number: US-DRREDDYS-USA/USA/19/0115142

PATIENT
  Age: 51 Year
  Sex: Female

DRUGS (1)
  1. PROPOFOL INJECTABLE EMULSION [Suspect]
     Active Substance: PROPOFOL
     Indication: SEDATION

REACTIONS (3)
  - Administration site extravasation [Recovered/Resolved]
  - Soft tissue injury [Recovered/Resolved]
  - Unresponsive to stimuli [Recovered/Resolved]
